FAERS Safety Report 4960056-4 (Version None)
Quarter: 2006Q1

REPORT INFORMATION
  Report Type: 
  Country: None (occurrence: None)
  Receive Date: 20060331
  Receipt Date: 20050414
  Transmission Date: 20060701
  Serious: Yes (Hospitalization)
  Sender: FDA-Public Use
  Company Number: US-MERCK-0504USA02490

PATIENT
  Age: 48 Year
  Sex: Male
  Weight: 87 kg

DRUGS (2)
  1. VIOXX [Suspect]
     Indication: BACK DISORDER
     Route: 048
     Dates: start: 19990801, end: 20040901
  2. LORTAB [Concomitant]
     Route: 065

REACTIONS (2)
  - CARDIAC DISORDER [None]
  - INJURY [None]
